FAERS Safety Report 25819755 (Version 1)
Quarter: 2025Q3

REPORT INFORMATION
  Report Type: Spontaneous
  Country: CA (occurrence: CA)
  Receive Date: 20250918
  Receipt Date: 20250918
  Transmission Date: 20251020
  Serious: Yes (Other)
  Sender: NOVARTIS
  Company Number: CA-002147023-NVSC2025CA144673

PATIENT
  Age: 62 Year
  Sex: Female

DRUGS (3)
  1. OCTREOTIDE [Suspect]
     Active Substance: OCTREOTIDE
     Indication: Product used for unknown indication
     Dosage: 30 MG, Q4W (INJECTION)
     Route: 030
  2. OCTREOTIDE [Suspect]
     Active Substance: OCTREOTIDE
     Dosage: 30 MG, Q4W
     Route: 030
  3. OCTREOTIDE [Suspect]
     Active Substance: OCTREOTIDE

REACTIONS (3)
  - Hypertension [Recovering/Resolving]
  - Incisional hernia [Recovering/Resolving]
  - Off label use [Recovering/Resolving]
